FAERS Safety Report 7337969-1 (Version None)
Quarter: 2011Q1

REPORT INFORMATION
  Report Type: 
  Country: None (occurrence: None)
  Receive Date: 20110308
  Receipt Date: 20110228
  Transmission Date: 20110831
  Serious: Yes (Hospitalization)
  Sender: FDA-Public Use
  Company Number: JP-ROCHE-763593

PATIENT
  Sex: Female
  Weight: 46.1 kg

DRUGS (16)
  1. TOCILIZUMAB [Suspect]
     Route: 041
     Dates: start: 20090227, end: 20090227
  2. TOCILIZUMAB [Suspect]
     Route: 041
     Dates: start: 20090522, end: 20090522
  3. TOCILIZUMAB [Suspect]
     Route: 041
     Dates: start: 20090619, end: 20090619
  4. TOCILIZUMAB [Suspect]
     Route: 041
     Dates: start: 20090717, end: 20090717
  5. TOCILIZUMAB [Suspect]
     Route: 041
     Dates: start: 20101012, end: 20101012
  6. TOCILIZUMAB [Suspect]
     Indication: RHEUMATOID ARTHRITIS
     Route: 041
     Dates: start: 20090130, end: 20090130
  7. TOCILIZUMAB [Suspect]
     Route: 041
     Dates: start: 20090327, end: 20090327
  8. TOCILIZUMAB [Suspect]
     Route: 041
     Dates: start: 20090424, end: 20090424
  9. TOCILIZUMAB [Suspect]
     Route: 041
     Dates: start: 20100610, end: 20100610
  10. NORVASC [Concomitant]
     Route: 048
  11. TOCILIZUMAB [Suspect]
     Route: 041
     Dates: start: 20090811, end: 20100323
  12. TOCILIZUMAB [Suspect]
     Route: 041
     Dates: start: 20100914, end: 20100914
  13. TOCILIZUMAB [Suspect]
     Route: 041
     Dates: start: 20100420, end: 20100420
  14. TOCILIZUMAB [Suspect]
     Route: 041
     Dates: start: 20100817, end: 20100817
  15. TOCILIZUMAB [Suspect]
     Route: 041
     Dates: start: 20100715, end: 20100715
  16. LIPITOR [Concomitant]
     Route: 048

REACTIONS (4)
  - CONTUSION [None]
  - HEPATIC FUNCTION ABNORMAL [None]
  - CHOLECYSTITIS ACUTE [None]
  - AORTIC DISSECTION [None]
